FAERS Safety Report 9969302 (Version 1)
Quarter: 2014Q1

REPORT INFORMATION
  Report Type: Report from Study
  Country: US (occurrence: US)
  Receive Date: 20140306
  Receipt Date: 20140306
  Transmission Date: 20141002
  Serious: No
  Sender: FDA-Public Use
  Company Number: US-009507513-1403USA001016

PATIENT
  Age: 50 Year
  Sex: Male
  Weight: 86.7 kg

DRUGS (6)
  1. TEMODAR [Suspect]
     Dosage: C1:75MG/M2 140MG DAYS 1-28
     Route: 048
     Dates: start: 20131230, end: 20140209
  2. TEMODAR [Suspect]
     Dosage: C2:75MG/M2 140MG DAYS 1-28
     Route: 048
     Dates: start: 20140210
  3. NEXIUM [Concomitant]
     Dosage: 40 MG, QD
     Dates: start: 20131109
  4. ACYCLOVIR [Concomitant]
     Dosage: 400 MG, BID
     Dates: start: 20131230
  5. KEPPRA [Concomitant]
     Dosage: 500 MG, BID
     Dates: start: 20130806
  6. PRINIVIL [Concomitant]
     Dosage: 40 MG, QD
     Dates: start: 20140214

REACTIONS (2)
  - Toxicity to various agents [Unknown]
  - Alanine aminotransferase increased [Unknown]
